FAERS Safety Report 7688940-1 (Version None)
Quarter: 2011Q3

REPORT INFORMATION
  Report Type: 
  Country: None (occurrence: None)
  Receive Date: 20110817
  Receipt Date: 20110809
  Transmission Date: 20111222
  Serious: Yes (Other)
  Sender: FDA-Public Use
  Company Number: PHHY2011JP64262

PATIENT
  Sex: Female

DRUGS (5)
  1. AMLODIPINE [Concomitant]
     Indication: HYPERTENSION
     Dosage: 05 MG, UNK
     Route: 048
     Dates: start: 20110428
  2. FERROUS SULFATE TAB [Concomitant]
     Dosage: 105 MG, UNK
     Route: 048
     Dates: start: 20110805
  3. MAGMITT [Concomitant]
     Dosage: 1.5 MG, UNK
     Route: 048
     Dates: start: 20110527
  4. AFINITOR [Suspect]
     Indication: METASTATIC RENAL CELL CARCINOMA
     Dosage: 10 MG DAILY
     Route: 048
     Dates: start: 20110428, end: 20110722
  5. ADALAT [Concomitant]
     Indication: HYPERTENSION
     Dosage: 20 MG, UNK
     Route: 048
     Dates: start: 20110428

REACTIONS (3)
  - PLATELET COUNT DECREASED [None]
  - C-REACTIVE PROTEIN INCREASED [None]
  - HYPERGLYCAEMIA [None]
